FAERS Safety Report 6023829-5 (Version None)
Quarter: 2008Q4

REPORT INFORMATION
  Report Type: 
  Country: None (occurrence: None)
  Receive Date: 20081230
  Receipt Date: 20081210
  Transmission Date: 20090506
  Serious: Yes (Other)
  Sender: FDA-Public Use
  Company Number: GB-PFIZER INC-2008157684

PATIENT

DRUGS (1)
  1. NICOTINE [Suspect]
     Dosage: 15-16 CARTRIDGES A DAY

REACTIONS (2)
  - OVERDOSE [None]
  - WEIGHT INCREASED [None]
